FAERS Safety Report 8554068-1 (Version None)
Quarter: 2012Q3

REPORT INFORMATION
  Report Type: 
  Country: None (occurrence: None)
  Receive Date: 20120731
  Receipt Date: 20120727
  Transmission Date: 20120928
  Serious: Yes (Other)
  Sender: FDA-Public Use
  Company Number: JP-BRISTOL-MYERS SQUIBB COMPANY-16761876

PATIENT
  Age: 50 Year
  Sex: Male

DRUGS (5)
  1. ATAZANAVIR [Suspect]
     Indication: HIV INFECTION
     Dosage: AUG10: 300 MG DAILY
     Route: 065
     Dates: start: 20050701
  2. RITONAVIR [Suspect]
     Indication: HIV INFECTION
     Dosage: AUG10: 100 MG DAILY
     Route: 065
     Dates: start: 20050701
  3. TENOFOVIR DISOPROXIL FUMARATE [Suspect]
     Indication: HIV INFECTION
     Dosage: TABS
     Route: 065
     Dates: start: 20050701
  4. LAMIVUDINE [Suspect]
     Indication: HIV INFECTION
     Dosage: AUG10:150 MG DAILY RESTARTED:JUL05
     Route: 065
     Dates: start: 20050501
  5. ABACAVIR [Suspect]
     Indication: HIV INFECTION
     Dosage: AUG10

REACTIONS (2)
  - CRYSTAL NEPHROPATHY [None]
  - TUBULOINTERSTITIAL NEPHRITIS [None]
